FAERS Safety Report 4695741-5 (Version None)
Quarter: 2005Q2

REPORT INFORMATION
  Report Type: 
  Country: None (occurrence: None)
  Receive Date: 20050616
  Receipt Date: 20050616
  Transmission Date: 20051028
  Serious: Yes (Other)
  Sender: FDA-Public Use
  Company Number: None

PATIENT
  Age: 33 Year
  Sex: Female
  Weight: 95.2554 kg

DRUGS (2)
  1. TYSABRI [Suspect]
     Indication: MULTIPLE SCLEROSIS
     Dosage: QM IV INFUSION (1 DOSE FOR 1.5 HR)
     Route: 042
     Dates: start: 20050218
  2. REBIF [Concomitant]

REACTIONS (4)
  - AMENORRHOEA [None]
  - DRUG EXPOSURE DURING PREGNANCY [None]
  - PREGNANCY TEST POSITIVE [None]
  - UNINTENDED PREGNANCY [None]
